FAERS Safety Report 9954463 (Version 1)
Quarter: 2014Q1

REPORT INFORMATION
  Report Type: Spontaneous
  Country: US (occurrence: US)
  Receive Date: 20140304
  Receipt Date: 20140304
  Transmission Date: 20141002
  Serious: No
  Sender: FDA-Public Use
  Company Number: US-AMGEN-USASP2014004683

PATIENT
  Age: 66 Year
  Sex: Female

DRUGS (3)
  1. ENBREL [Suspect]
     Indication: RHEUMATOID ARTHRITIS
     Dosage: UNK
     Route: 065
  2. KLONOPIN [Concomitant]
     Dosage: UNK
  3. VISTARIL                           /00058402/ [Concomitant]
     Dosage: UNK

REACTIONS (5)
  - Adverse drug reaction [Unknown]
  - Malaise [Unknown]
  - Vomiting [Unknown]
  - Condition aggravated [Unknown]
  - Drug ineffective [Unknown]
